APPROVED DRUG PRODUCT: SEGLENTIS
Active Ingredient: CELECOXIB; TRAMADOL HYDROCHLORIDE
Strength: 56MG;44MG
Dosage Form/Route: TABLET;ORAL
Application: N213426 | Product #001
Applicant: KOWA PHARMACEUTICALS AMERICA INC
Approved: Oct 15, 2021 | RLD: Yes | RS: No | Type: DISCN

PATENTS:
Patent 10238668 | Expires: Apr 19, 2030
Patent 10548909 | Expires: Apr 19, 2030
Patent 11478488 | Expires: Apr 19, 2030
Patent 8846744 | Expires: Jun 3, 2031
Patent 9012440 | Expires: Apr 19, 2030
Patent 10245276 | Expires: Apr 19, 2030
Patent 8598152 | Expires: Apr 19, 2030